FAERS Safety Report 5131247-7 (Version None)
Quarter: 2006Q4

REPORT INFORMATION
  Report Type: 
  Country: None (occurrence: None)
  Receive Date: 20061018
  Receipt Date: 20061018
  Transmission Date: 20070319
  Serious: Yes (Hospitalization)
  Sender: FDA-Public Use
  Company Number: None

PATIENT
  Age: 41 Year
  Sex: Female
  Weight: 68.0396 kg

DRUGS (2)
  1. ATIVAN [Suspect]
     Indication: DEPRESSION
     Dosage: .5MG  ONCE DAILY  ORALLY
     Route: 048
     Dates: start: 20060724, end: 20060820
  2. LEXAPRO [Suspect]
     Dosage: 20MG   ONCE DAILY   ORALLY
     Route: 048
     Dates: start: 20060724, end: 20060820

REACTIONS (1)
  - GRAND MAL CONVULSION [None]
